FAERS Safety Report 4829186-1 (Version None)
Quarter: 2005Q4

REPORT INFORMATION
  Report Type: 
  Country: None (occurrence: None)
  Receive Date: 20051116
  Receipt Date: 20051107
  Transmission Date: 20060501
  Serious: Yes (Hospitalization)
  Sender: FDA-Public Use
  Company Number: 2005UW16816

PATIENT
  Age: 17 Year
  Sex: Male

DRUGS (4)
  1. SEROQUEL [Suspect]
     Route: 048
  2. ABLIIFY [Concomitant]
  3. GEODON [Concomitant]
  4. ZOLOFT [Concomitant]

REACTIONS (8)
  - AGGRESSION [None]
  - FEELING ABNORMAL [None]
  - INTENTIONAL SELF-INJURY [None]
  - NIGHTMARE [None]
  - RESTLESSNESS [None]
  - SELF INJURIOUS BEHAVIOUR [None]
  - SLEEP TERROR [None]
  - TREATMENT NONCOMPLIANCE [None]
